FAERS Safety Report 7070101-0 (Version None)
Quarter: 2010Q4

REPORT INFORMATION
  Report Type: 
  Country: None (occurrence: None)
  Receive Date: 20101028
  Receipt Date: 20100826
  Transmission Date: 20110411
  Serious: No
  Sender: FDA-Public Use
  Company Number: US-WYE-H17302910

PATIENT
  Age: 42 Year
  Sex: Female
  Weight: 90.8 kg

DRUGS (1)
  1. ADVIL [Suspect]
     Indication: DYSMENORRHOEA
     Dosage: 4 TABLETS AS NEEDED
     Route: 048

REACTIONS (1)
  - INCORRECT DOSE ADMINISTERED [None]
